FAERS Safety Report 17227917 (Version 1)
Quarter: 2020Q1

REPORT INFORMATION
  Report Type: Spontaneous
  Country: US (occurrence: US)
  Receive Date: 20200103
  Receipt Date: 20200103
  Transmission Date: 20200409
  Serious: No
  Sender: FDA-Public Use
  Company Number: US-BIOGEN-2008BI015471

PATIENT
  Age: 51 Year
  Sex: Male

DRUGS (27)
  1. AVONEX PEN [Suspect]
     Active Substance: INTERFERON BETA-1A
  2. AMPYRA [Suspect]
     Active Substance: DALFAMPRIDINE
     Route: 050
  3. AVONEX [Suspect]
     Active Substance: INTERFERON BETA-1A
  4. AVONEX [Suspect]
     Active Substance: INTERFERON BETA-1A
  5. AVONEX PEN [Suspect]
     Active Substance: INTERFERON BETA-1A
     Indication: MULTIPLE SCLEROSIS
     Route: 050
     Dates: start: 200803, end: 2012
  6. AVONEX [Suspect]
     Active Substance: INTERFERON BETA-1A
     Indication: MULTIPLE SCLEROSIS
     Route: 050
     Dates: start: 20080423, end: 20130108
  7. ALEVE [Concomitant]
     Active Substance: NAPROXEN SODIUM
     Indication: INJECTION SITE PAIN
     Route: 050
  8. AVONEX [Suspect]
     Active Substance: INTERFERON BETA-1A
  9. AVONEX PEN [Suspect]
     Active Substance: INTERFERON BETA-1A
     Route: 050
     Dates: start: 2012
  10. AVONEX [Suspect]
     Active Substance: INTERFERON BETA-1A
  11. AVONEX [Suspect]
     Active Substance: INTERFERON BETA-1A
  12. AVONEX [Suspect]
     Active Substance: INTERFERON BETA-1A
  13. DALFAMPRIDINE. [Suspect]
     Active Substance: DALFAMPRIDINE
     Indication: PRODUCT USED FOR UNKNOWN INDICATION
     Route: 065
  14. AVONEX [Suspect]
     Active Substance: INTERFERON BETA-1A
  15. AVONEX [Suspect]
     Active Substance: INTERFERON BETA-1A
  16. AVONEX [Suspect]
     Active Substance: INTERFERON BETA-1A
  17. AMPYRA [Suspect]
     Active Substance: DALFAMPRIDINE
     Indication: GAIT DISTURBANCE
     Route: 050
     Dates: start: 2014
  18. AMPYRA [Suspect]
     Active Substance: DALFAMPRIDINE
     Route: 050
  19. AVONEX [Suspect]
     Active Substance: INTERFERON BETA-1A
     Route: 050
     Dates: start: 20130109
  20. AVONEX [Suspect]
     Active Substance: INTERFERON BETA-1A
  21. AVONEX [Suspect]
     Active Substance: INTERFERON BETA-1A
  22. COMPAZINE [Concomitant]
     Active Substance: PROCHLORPERAZINE MALEATE
     Indication: ANXIETY
     Route: 050
     Dates: start: 2014
  23. AVONEX [Suspect]
     Active Substance: INTERFERON BETA-1A
     Indication: MULTIPLE SCLEROSIS
     Route: 065
     Dates: start: 20080401
  24. AVONEX [Suspect]
     Active Substance: INTERFERON BETA-1A
  25. AVONEX [Suspect]
     Active Substance: INTERFERON BETA-1A
  26. AVONEX PEN [Suspect]
     Active Substance: INTERFERON BETA-1A
  27. AVONEX [Suspect]
     Active Substance: INTERFERON BETA-1A

REACTIONS (24)
  - Gait disturbance [Not Recovered/Not Resolved]
  - Mobility decreased [Not Recovered/Not Resolved]
  - Depression [Not Recovered/Not Resolved]
  - Balance disorder [Not Recovered/Not Resolved]
  - Neuropathy peripheral [Not Recovered/Not Resolved]
  - Central nervous system lesion [Not Recovered/Not Resolved]
  - Condition aggravated [Unknown]
  - Memory impairment [Not Recovered/Not Resolved]
  - Vertigo [Not Recovered/Not Resolved]
  - Temperature intolerance [Not Recovered/Not Resolved]
  - Influenza like illness [Recovered/Resolved]
  - Paraesthesia [Recovered/Resolved]
  - Optic neuritis [Not Recovered/Not Resolved]
  - Band sensation [Not Recovered/Not Resolved]
  - Photopsia [Not Recovered/Not Resolved]
  - Muscle spasms [Not Recovered/Not Resolved]
  - Anxiety [Not Recovered/Not Resolved]
  - Chest discomfort [Recovered/Resolved]
  - Multiple sclerosis [Not Recovered/Not Resolved]
  - Off label use [Unknown]
  - Hypoaesthesia [Recovered/Resolved]
  - Cognitive disorder [Not Recovered/Not Resolved]
  - Aphasia [Not Recovered/Not Resolved]
  - Therapeutic response unexpected [Unknown]

NARRATIVE: CASE EVENT DATE: 20080211
